FAERS Safety Report 5346719-X (Version None)
Quarter: 2007Q2

REPORT INFORMATION
  Report Type: 
  Country: None (occurrence: None)
  Receive Date: 20070605
  Receipt Date: 20070524
  Transmission Date: 20071010
  Serious: Yes (Life-Threatening)
  Sender: FDA-Public Use
  Company Number: GB-PFIZER INC-2007043113

PATIENT
  Age: 64 Year
  Sex: Male
  Weight: 94 kg

DRUGS (7)
  1. GABAPENTIN [Suspect]
     Indication: PAIN
     Route: 048
     Dates: start: 20000504, end: 20070329
  2. ACETYLSALICYLIC ACID SRT [Concomitant]
     Route: 048
  3. BISOPROLOL FUMARATE [Concomitant]
     Route: 048
  4. ISOSORBIDE MONONITRATE [Concomitant]
     Dates: start: 20061030, end: 20070412
  5. LANSOPRAZOLE [Concomitant]
     Route: 048
  6. LISINOPRIL [Concomitant]
  7. SIMVASTATIN [Concomitant]

REACTIONS (4)
  - BLOOD PRESSURE FLUCTUATION [None]
  - MEMORY IMPAIRMENT [None]
  - ROAD TRAFFIC ACCIDENT [None]
  - SYNCOPE [None]
